FAERS Safety Report 10658063 (Version 1)
Quarter: 2014Q4

REPORT INFORMATION
  Report Type: Spontaneous
  Country: US (occurrence: None)
  Receive Date: 20141205
  Receipt Date: 20141205
  Transmission Date: 20150529
  Serious: Yes (Other)
  Sender: FDA-Public Use
  Company Number: 163-POMAL-14084405

PATIENT
  Age: 71 Year
  Sex: Female
  Weight: 54.4 kg

DRUGS (6)
  1. DEXAMETHASONE (DEXAMETHASONE) (UNKNOWN) [Concomitant]
     Active Substance: DEXAMETHASONE
  2. FOLIC ACID (FOLIC ACID) (UNKNOWN) [Concomitant]
  3. TOPROL XL (METOPROLOL SUCCINATE) (UNKNOWN) [Concomitant]
  4. AMOXICILLIN (AMOXICILLIN) (UNKNOWN) (AMOXICILLIN) [Concomitant]
     Active Substance: AMOXICILLIN
  5. LOSARTAN (LOSARTAN) (UNKNOWN) [Concomitant]
     Active Substance: LOSARTAN
  6. POMALYST [Suspect]
     Active Substance: POMALIDOMIDE
     Indication: PLASMA CELL MYELOMA
     Dosage: 4 MG, 21 IN 21 D, PO
     Route: 048
     Dates: start: 201407

REACTIONS (1)
  - Blood pressure increased [None]

NARRATIVE: CASE EVENT DATE: 2014
